FAERS Safety Report 8570167-2 (Version None)
Quarter: 2012Q3

REPORT INFORMATION
  Report Type: 
  Country: None (occurrence: None)
  Receive Date: 20120803
  Receipt Date: 20120730
  Transmission Date: 20120928
  Serious: Yes (Other)
  Sender: FDA-Public Use
  Company Number: IE-PFIZER INC-2012138195

PATIENT
  Age: 33 Year
  Sex: Male

DRUGS (3)
  1. METHADONE [Concomitant]
     Indication: DRUG DEPENDENCE
     Dosage: UNK
  2. DIAZEPAM [Concomitant]
     Dosage: UNK
  3. LYRICA [Suspect]
     Dosage: 150 MG, 3X/DAY

REACTIONS (3)
  - TREATMENT NONCOMPLIANCE [None]
  - PRESCRIPTION FORM TAMPERING [None]
  - DRUG DEPENDENCE [None]
